FAERS Safety Report 24431575 (Version 1)
Quarter: 2024Q4

REPORT INFORMATION
  Report Type: Spontaneous
  Country: IN (occurrence: IN)
  Receive Date: 20241014
  Receipt Date: 20241014
  Transmission Date: 20250115
  Serious: Yes (Other)
  Sender: WOCKHARDT LIMITED
  Company Number: IN-WOCKHARDT LIMITED-2024WLD000036

PATIENT
  Age: 40 Year
  Sex: Male

DRUGS (1)
  1. TOPIRAMATE [Suspect]
     Active Substance: TOPIRAMATE
     Indication: Seizure
     Dosage: UNK
     Route: 065

REACTIONS (1)
  - Eosinophilic pneumonia [Recovered/Resolved]
